FAERS Safety Report 23759282 (Version 1)
Quarter: 2024Q2

REPORT INFORMATION
  Report Type: Spontaneous
  Country: US (occurrence: None)
  Receive Date: 20240418
  Receipt Date: 20240418
  Transmission Date: 20240716
  Serious: No
  Sender: FDA-Public Use
  Company Number: US-ROCHE-3451666

PATIENT
  Sex: Male

DRUGS (4)
  1. ESBRIET [Suspect]
     Active Substance: PIRFENIDONE
     Indication: Idiopathic pulmonary fibrosis
     Dosage: TAKE 3 TABLETS (801 MG) BY MOUTH 3 TIMES A DAY WITH FOOD
     Route: 048
     Dates: start: 20220620
  2. BENZONATATE [Concomitant]
     Active Substance: BENZONATATE
  3. ESBRIET [Concomitant]
     Active Substance: PIRFENIDONE
  4. TAMSULOSIN [Concomitant]
     Active Substance: TAMSULOSIN

REACTIONS (1)
  - Decreased appetite [Not Recovered/Not Resolved]
